FAERS Safety Report 24291653 (Version 1)
Quarter: 2024Q3

REPORT INFORMATION
  Report Type: Spontaneous
  Country: US (occurrence: None)
  Receive Date: 20240906
  Receipt Date: 20240906
  Transmission Date: 20241017
  Serious: No
  Sender: DOMPE FARMACEUTICI
  Company Number: US-FARMAPROD-202308-202309-2905

PATIENT
  Age: 76 Year
  Sex: Male
  Weight: 128.82 kg

DRUGS (42)
  1. OXERVATE [Suspect]
     Active Substance: CENEGERMIN-BKBJ
     Indication: Ulcerative keratitis
     Route: 047
     Dates: start: 20230921
  2. OXERVATE [Suspect]
     Active Substance: CENEGERMIN-BKBJ
     Indication: Neurotrophic keratopathy
  3. TRIAMCINOLONE ACETONIDE [Concomitant]
     Active Substance: TRIAMCINOLONE ACETONIDE
  4. DOXYCYCLINE HYCLATE [Concomitant]
     Active Substance: DOXYCYCLINE HYCLATE
  5. GUAIFENESIN AND CODEINE PHOSPHATE [Concomitant]
     Active Substance: CODEINE PHOSPHATE\GUAIFENESIN
     Dosage: 10-100 MG /5 LIQUID
  6. VIRTUSSIN AC [Concomitant]
     Active Substance: CODEINE PHOSPHATE\GUAIFENESIN
     Dosage: 10-100 MG /5 LIQUID
  7. AZITHROMYCIN [Concomitant]
     Active Substance: AZITHROMYCIN
  8. HYDROCHLOROTHIAZIDE [Concomitant]
     Active Substance: HYDROCHLOROTHIAZIDE
  9. MORPHINE SULFATE [Concomitant]
     Active Substance: MORPHINE SULFATE
  10. ROSUVASTATIN CALCIUM [Concomitant]
     Active Substance: ROSUVASTATIN CALCIUM
  11. ASPIRIN [Concomitant]
     Active Substance: ASPIRIN
  12. CLOPIDOGREL [Concomitant]
     Active Substance: CLOPIDOGREL BISULFATE
  13. OXYCODONE HYDROCHLORIDE [Concomitant]
     Active Substance: OXYCODONE HYDROCHLORIDE
  14. ACETAMINOPHEN [Concomitant]
     Active Substance: ACETAMINOPHEN
  15. CARVEDILOL [Concomitant]
     Active Substance: CARVEDILOL
  16. NITROGLYCERIN [Concomitant]
     Active Substance: NITROGLYCERIN
  17. NALOXONE HCL [Concomitant]
     Active Substance: NALOXONE HYDROCHLORIDE
  18. COSOPT PF [Concomitant]
     Active Substance: DORZOLAMIDE HYDROCHLORIDE\TIMOLOL MALEATE
     Dosage: 2 %-0.5 %
  19. FLUTICASONE PROPIONATE [Concomitant]
     Active Substance: FLUTICASONE PROPIONATE
     Dosage: SUSPENSION
  20. CETIRIZINE HCL [Concomitant]
     Active Substance: CETIRIZINE HYDROCHLORIDE
  21. LATANOPROST [Concomitant]
     Active Substance: LATANOPROST
  22. LISINOPRIL [Concomitant]
     Active Substance: LISINOPRIL
  23. DICLOFENAC SODIUM [Concomitant]
     Active Substance: DICLOFENAC\DICLOFENAC SODIUM
  24. METHOCARBAMOL [Concomitant]
     Active Substance: METHOCARBAMOL
  25. VENLAFAXINE HCL [Concomitant]
     Active Substance: VENLAFAXINE HYDROCHLORIDE
     Dosage: FOR 24 HOURS
  26. GUAIFENESIN [Concomitant]
     Active Substance: GUAIFENESIN
     Dosage: FOR 12 HOURS
  27. POTASSIUM [Concomitant]
     Active Substance: POTASSIUM
     Dosage: 595 (99) MG
  28. LIDOCAINE [Concomitant]
     Active Substance: LIDOCAINE
     Dosage: ADHESIVE PATCH
  29. METFORMIN HYDROCHLORIDE [Concomitant]
     Active Substance: METFORMIN HYDROCHLORIDE
     Dosage: FOR 24 HOURS
  30. ALBUTEROL SULFATE [Concomitant]
     Active Substance: ALBUTEROL SULFATE
     Dosage: HYDROFLUOROALKANE, AEROSOL WITH ADAPTER
  31. ROPINIROLE HYDROCHLORIDE [Concomitant]
     Active Substance: ROPINIROLE HYDROCHLORIDE
  32. AMMONIUM LACTATE [Concomitant]
     Active Substance: AMMONIUM LACTATE
  33. ALPHAGAN P [Concomitant]
     Active Substance: BRIMONIDINE TARTRATE
  34. TAMSULOSIN HYDROCHLORIDE [Concomitant]
     Active Substance: TAMSULOSIN HYDROCHLORIDE
  35. ROPINIROLE HYDROCHLORIDE [Concomitant]
     Active Substance: ROPINIROLE HYDROCHLORIDE
  36. VITAMIN D3 [Concomitant]
     Active Substance: CHOLECALCIFEROL
  37. ZOLPIDEM TARTRATE [Concomitant]
     Active Substance: ZOLPIDEM TARTRATE
  38. GORMEL [Concomitant]
  39. VENTOLIN HFA [Concomitant]
     Active Substance: ALBUTEROL SULFATE
     Dosage: HYDROFLUOROALKANE, AEROSOL WITH ADAPTER
  40. ACETAMINOPHEN\OXYCODONE HYDROCHLORIDE [Concomitant]
     Active Substance: ACETAMINOPHEN\OXYCODONE HYDROCHLORIDE
  41. POTASSIUM CHLORIDE [Concomitant]
     Active Substance: POTASSIUM CHLORIDE
     Dosage: PARTICLE SUSTAINED-RELEASE TABLETS
  42. PREDNISONE [Concomitant]
     Active Substance: PREDNISONE

REACTIONS (3)
  - Eyelid pain [Recovering/Resolving]
  - Accidental overdose [Recovered/Resolved]
  - Erythema of eyelid [Recovering/Resolving]

NARRATIVE: CASE EVENT DATE: 20230923
